FAERS Safety Report 11213328 (Version 1)
Quarter: 2015Q2

REPORT INFORMATION
  Report Type: Spontaneous
  Country: US (occurrence: US)
  Receive Date: 20150623
  Receipt Date: 20150623
  Transmission Date: 20150821
  Serious: Yes (Hospitalization, Other)
  Sender: FDA-Public Use
  Company Number: US-SHIRE-US201505940

PATIENT
  Age: 4 Year
  Sex: Female

DRUGS (1)
  1. CARBATROL [Suspect]
     Active Substance: CARBAMAZEPINE
     Indication: EPILEPSY
     Dosage: UNK, UNKNOWN
     Route: 048

REACTIONS (2)
  - Toxicity to various agents [Recovering/Resolving]
  - Acute hepatic failure [Recovering/Resolving]
